FAERS Safety Report 21396955 (Version 1)
Quarter: 2022Q3

REPORT INFORMATION
  Report Type: Spontaneous
  Country: US (occurrence: US)
  Receive Date: 20220930
  Receipt Date: 20220930
  Transmission Date: 20221027
  Serious: Yes (Other)
  Sender: FDA-Public Use
  Company Number: US-BAYER-2022A132685

PATIENT
  Age: 34 Year
  Sex: Male

DRUGS (2)
  1. KOVALTRY [Suspect]
     Active Substance: ANTIHEMOPHILIC FACTOR, HUMAN RECOMBINANT
     Dosage: 4300 OR 2150 UNITS ( +/- 10 % )- INFUSED PRE MOHS PROCEDURE
  2. KOVALTRY [Suspect]
     Active Substance: ANTIHEMOPHILIC FACTOR, HUMAN RECOMBINANT
     Dosage: 4300 OR 2150 UNITS ( +/- 10 % )- -INFUSED POST MOHS PROCEDURE

REACTIONS (1)
  - Micrographic skin surgery [Recovering/Resolving]

NARRATIVE: CASE EVENT DATE: 20220920
